FAERS Safety Report 11359582 (Version 1)
Quarter: 2015Q3

REPORT INFORMATION
  Report Type: Spontaneous
  Country: US (occurrence: None)
  Receive Date: 20150720
  Receipt Date: 20150720
  Transmission Date: 20151125
  Serious: Yes (Hospitalization)
  Sender: FDA-Public Use
  Company Number: 1713747-2015-999212

PATIENT
  Age: 42 Year
  Sex: Male

DRUGS (5)
  1. NICARDIPINE [Concomitant]
     Active Substance: NICARDIPINE
  2. LIBERTY CYCLER SET [Suspect]
     Active Substance: DEVICE
  3. CLONIDINE. [Concomitant]
     Active Substance: CLONIDINE
  4. DELFLEX [Suspect]
     Active Substance: CALCIUM CHLORIDE\DEXTROSE MONOHYDRATE\MAGNESIUM CHLORIDE\SODIUM CHLORIDE\SODIUM LACTATE
     Indication: PERITONEAL DIALYSIS
     Route: 033
  5. LIBERTY CYCLER [Suspect]
     Active Substance: DEVICE

REACTIONS (1)
  - Peritonitis [None]

NARRATIVE: CASE EVENT DATE: 20150517
